FAERS Safety Report 9105667 (Version 1)
Quarter: 2013Q1

REPORT INFORMATION
  Report Type: Spontaneous
  Country: US (occurrence: US)
  Receive Date: 20130220
  Receipt Date: 20130220
  Transmission Date: 20140127
  Serious: Yes (Other)
  Sender: FDA-Public Use
  Company Number: US-FRI-1000041736

PATIENT
  Age: 28 Year
  Sex: Female
  Weight: 79.3 kg

DRUGS (3)
  1. TEFLARO [Suspect]
     Indication: ENDOCARDITIS
     Dosage: 600 MG EVERY 12 HOURS
     Route: 042
     Dates: start: 20121207, end: 20130119
  2. TEFLARO [Suspect]
     Indication: STAPHYLOCOCCAL INFECTION
  3. OPIATES NOS [Concomitant]

REACTIONS (3)
  - Nephropathy toxic [Recovered/Resolved]
  - Eosinophilia [Recovered/Resolved]
  - Off label use [Recovered/Resolved]
